FAERS Safety Report 15471848 (Version 3)
Quarter: 2018Q4

REPORT INFORMATION
  Report Type: Spontaneous
  Country: CA (occurrence: CA)
  Receive Date: 20181008
  Receipt Date: 20181217
  Transmission Date: 20190205
  Serious: Yes (Other)
  Sender: FDA-Public Use
  Company Number: CA-ROCHE-2194185

PATIENT
  Age: 50 Year
  Sex: Female

DRUGS (15)
  1. SYMBICORT [Concomitant]
     Active Substance: BUDESONIDE\FORMOTEROL FUMARATE DIHYDRATE
     Indication: PRODUCT USED FOR UNKNOWN INDICATION
     Dosage: 2 DF, TID
     Route: 055
     Dates: start: 2008
  2. XOLAIR [Suspect]
     Active Substance: OMALIZUMAB
     Route: 058
     Dates: start: 20180920
  3. SPIRIVA [Concomitant]
     Active Substance: TIOTROPIUM BROMIDE MONOHYDRATE
     Indication: PRODUCT USED FOR UNKNOWN INDICATION
     Dosage: 2 DF, QD
     Route: 048
     Dates: start: 201801
  4. VENTOLIN [Concomitant]
     Active Substance: ALBUTEROL SULFATE
     Indication: PRODUCT USED FOR UNKNOWN INDICATION
     Dosage: 3 DF, TID
     Route: 048
     Dates: start: 1978
  5. XOLAIR [Suspect]
     Active Substance: OMALIZUMAB
     Route: 058
     Dates: start: 20180706
  6. XOLAIR [Suspect]
     Active Substance: OMALIZUMAB
     Route: 058
     Dates: start: 20180802
  7. HYDROVAL [Suspect]
     Active Substance: HYDROCORTISONE VALERATE
     Indication: ERYTHEMA
     Route: 061
  8. HYDROVAL [Suspect]
     Active Substance: HYDROCORTISONE VALERATE
     Indication: PRURITUS
     Route: 061
  9. XOLAIR [Suspect]
     Active Substance: OMALIZUMAB
     Indication: ASTHMA
     Route: 058
     Dates: start: 20180621
  10. REACTINE (CANADA) [Concomitant]
     Active Substance: CETIRIZINE HYDROCHLORIDE
     Indication: PRODUCT USED FOR UNKNOWN INDICATION
     Dosage: 2 DF, QD
     Route: 048
     Dates: start: 1998
  11. HYDROVAL [Suspect]
     Active Substance: HYDROCORTISONE VALERATE
     Indication: SKIN EXFOLIATION
     Route: 061
  12. HYDROVAL [Suspect]
     Active Substance: HYDROCORTISONE VALERATE
     Indication: EYELID OEDEMA
  13. XOLAIR [Suspect]
     Active Substance: OMALIZUMAB
     Route: 058
     Dates: start: 20180802
  14. HYDROVAL [Suspect]
     Active Substance: HYDROCORTISONE VALERATE
     Indication: RASH GENERALISED
     Dosage: UNK
     Route: 061
  15. MORPHINE [Suspect]
     Active Substance: MORPHINE
     Indication: BACK DISORDER
     Dosage: UNK
     Route: 065

REACTIONS (19)
  - Insomnia [Unknown]
  - Skin laceration [Unknown]
  - Skin atrophy [Unknown]
  - Eyelid oedema [Not Recovered/Not Resolved]
  - Rash generalised [Recovering/Resolving]
  - Erythema [Not Recovered/Not Resolved]
  - Asthma [Unknown]
  - Ear haemorrhage [Unknown]
  - Haemorrhage [Unknown]
  - Chest discomfort [Unknown]
  - Pruritus [Not Recovered/Not Resolved]
  - Back disorder [Unknown]
  - Immediate post-injection reaction [Recovering/Resolving]
  - Drug hypersensitivity [Unknown]
  - Oropharyngeal spasm [Unknown]
  - Skin exfoliation [Not Recovered/Not Resolved]
  - Dysphagia [Unknown]
  - Dry throat [Unknown]
  - Malaise [Unknown]

NARRATIVE: CASE EVENT DATE: 20180621
